FAERS Safety Report 6551394-2 (Version None)
Quarter: 2010Q1

REPORT INFORMATION
  Report Type: 
  Country: None (occurrence: None)
  Receive Date: 20100126
  Receipt Date: 20100121
  Transmission Date: 20100710
  Serious: Yes (Other)
  Sender: FDA-Public Use
  Company Number: ES-ROCHE-680910

PATIENT
  Sex: Female

DRUGS (1)
  1. MIRCERA [Suspect]
     Indication: ANAEMIA
     Dosage: FROM: INFUSION
     Route: 042
     Dates: start: 20091201

REACTIONS (1)
  - PYREXIA [None]
